FAERS Safety Report 4443725-4 (Version None)
Quarter: 2004Q3

REPORT INFORMATION
  Report Type: 
  Country: None (occurrence: None)
  Receive Date: 20040729
  Receipt Date: 20040414
  Transmission Date: 20050211
  Serious: Yes (Death)
  Sender: FDA-Public Use
  Company Number: USA-2004-0014549

PATIENT
  Age: 61 Year
  Sex: Female
  Weight: 59.9 kg

DRUGS (5)
  1. MORPHINE SULFATE [Suspect]
     Indication: PAIN
  2. HYDROMORPHONE HCL [Suspect]
  3. ACETAMINOPHEN [Suspect]
  4. LORAZEPAM [Suspect]
  5. DIPHENHYDRAMINE HCL [Suspect]

REACTIONS (1)
  - OVERDOSE [None]
